FAERS Safety Report 6767685-6 (Version None)
Quarter: 2010Q2

REPORT INFORMATION
  Report Type: 
  Country: None (occurrence: None)
  Receive Date: 20100608
  Receipt Date: 20100505
  Transmission Date: 20101027
  Serious: Yes (Hospitalization)
  Sender: FDA-Public Use
  Company Number: ALB-005-10-FR

PATIENT
  Age: 2 Year
  Sex: Male

DRUGS (11)
  1. CLOXACILLIN SODIUM [Suspect]
     Indication: STAPHYLOCOCCAL INFECTION
     Dosage: 150 MG/KG, I.V.
     Route: 042
     Dates: start: 20100430, end: 20100505
  2. AUGMENTIN [Suspect]
     Indication: SKIN LESION
     Dosage: 150 MG/KG, I.V.
     Route: 042
     Dates: start: 20100428, end: 20100430
  3. GENTALLINE (GENTAMICIN) [Suspect]
     Indication: SKIN LESION
     Dosage: 5 MG/KG,I.V.
     Route: 042
     Dates: start: 20100428, end: 20100430
  4. ZOVIRAX [Suspect]
     Indication: SKIN LESION
     Dosage: 500 MG/M2, I.V.
     Route: 042
     Dates: start: 20100428, end: 20100501
  5. ALBUMIN (HUMAN) [Suspect]
     Indication: SKIN LESION
     Dosage: 10 G
     Dates: start: 20100429, end: 20100501
  6. PERFALGAN (PARACETAMOL) [Concomitant]
  7. HYPNOVEL (MIDAZOLAM) [Concomitant]
  8. SUFENTA (SUFENTANIL) [Concomitant]
  9. OMEPRAZOLE [Concomitant]
  10. VITAMIN A [Concomitant]
  11. RIFAMYCINE [Concomitant]

REACTIONS (2)
  - STAPHYLOCOCCAL INFECTION [None]
  - TOXIC SKIN ERUPTION [None]
